FAERS Safety Report 18193759 (Version 1)
Quarter: 2020Q3

REPORT INFORMATION
  Report Type: Spontaneous
  Country: CA (occurrence: CA)
  Receive Date: 20200825
  Receipt Date: 20200825
  Transmission Date: 20201103
  Serious: Yes (Other)
  Sender: FDA-Public Use
  Company Number: CA-COVIS PHARMA B.V.-2020COV00362

PATIENT
  Age: 8 Year
  Sex: Female
  Weight: 29.03 kg

DRUGS (7)
  1. SALBUTAMOL SULFATE [Suspect]
     Active Substance: ALBUTEROL SULFATE
  2. FLUTICASONE/FORMOTEROL [Suspect]
     Active Substance: FLUTICASONE\FORMOTEROL
     Indication: ASTHMA
  3. CICLESONIDE [Suspect]
     Active Substance: CICLESONIDE
     Indication: ASTHMA
     Dosage: 2 DOSAGE UNITS/FORM 1X/DAY
  4. OMALIZUMAB. [Suspect]
     Active Substance: OMALIZUMAB
     Dosage: 100 MG
     Route: 058
  5. PREDNISONE. [Concomitant]
     Active Substance: PREDNISONE
     Dosage: 35 MG
  6. ALVESCO [Suspect]
     Active Substance: CICLESONIDE
  7. MYCOPHENOLIC ACID. [Concomitant]
     Active Substance: MYCOPHENOLIC ACID
     Dosage: 1500 MG, 1X/DAY

REACTIONS (6)
  - Wheezing [Unknown]
  - Nephrotic syndrome [Unknown]
  - Blood count abnormal [Unknown]
  - Cough [Unknown]
  - Upper respiratory tract infection [Unknown]
  - Condition aggravated [Unknown]
